FAERS Safety Report 5038455-4 (Version None)
Quarter: 2006Q2

REPORT INFORMATION
  Report Type: 
  Country: None (occurrence: None)
  Receive Date: 20060628
  Receipt Date: 20060628
  Transmission Date: 20061013
  Serious: Yes (Other)
  Sender: FDA-Public Use
  Company Number: None

PATIENT
  Age: 64 Year
  Sex: Female
  Weight: 73.0291 kg

DRUGS (1)
  1. AVASTIN [Suspect]
     Indication: COLON CANCER
     Dosage: 400 MG Q14 DAYS IV DRIP
     Route: 042
     Dates: start: 20060516, end: 20060626

REACTIONS (1)
  - DEEP VEIN THROMBOSIS [None]
